FAERS Safety Report 7141587-8 (Version None)
Quarter: 2010Q4

REPORT INFORMATION
  Report Type: 
  Country: None (occurrence: None)
  Receive Date: 20101202
  Receipt Date: 20101202
  Transmission Date: 20110411
  Serious: Yes (Hospitalization)
  Sender: FDA-Public Use
  Company Number: None

PATIENT
  Age: 33 Year
  Sex: Male
  Weight: 78.4723 kg

DRUGS (1)
  1. LEXAPRO [Suspect]
     Indication: ANXIETY
     Dosage: 10 MG ONCE PER DAY ORAL, PILL
     Route: 048
     Dates: start: 20100910, end: 20101015

REACTIONS (3)
  - DISSOCIATIVE FUGUE [None]
  - LOSS OF CONSCIOUSNESS [None]
  - MANIA [None]
